FAERS Safety Report 5684893-6 (Version None)
Quarter: 2008Q1

REPORT INFORMATION
  Report Type: 
  Country: None (occurrence: None)
  Receive Date: 20080328
  Receipt Date: 20071119
  Transmission Date: 20080703
  Serious: Yes (Other)
  Sender: FDA-Public Use
  Company Number: US-BRISTOL-MYERS SQUIBB COMPANY-13987805

PATIENT
  Age: 33 Year
  Sex: Female

DRUGS (3)
  1. ERBITUX [Suspect]
     Indication: NEOPLASM MALIGNANT
     Dates: start: 20070906, end: 20071109
  2. PROCRIT [Concomitant]
  3. CISPLATIN [Concomitant]

REACTIONS (1)
  - MALIGNANT NEOPLASM PROGRESSION [None]
